FAERS Safety Report 14586780 (Version 1)
Quarter: 2018Q1

REPORT INFORMATION
  Report Type: Spontaneous
  Country: US (occurrence: US)
  Receive Date: 20180228
  Receipt Date: 20180228
  Transmission Date: 20180509
  Serious: No
  Sender: FDA-Public Use
  Company Number: None

PATIENT
  Age: 61 Year
  Sex: Male

DRUGS (3)
  1. TIKOSYN [Concomitant]
     Active Substance: DOFETILIDE
  2. KYNAMRO [Suspect]
     Active Substance: MIPOMERSEN SODIUM
     Indication: TYPE IIA HYPERLIPIDAEMIA
     Route: 058
     Dates: start: 20180120
  3. MORPHINE SUL [Concomitant]
     Active Substance: MORPHINE SULFATE

REACTIONS (1)
  - Tremor [None]

NARRATIVE: CASE EVENT DATE: 20180127
